FAERS Safety Report 4635693-7 (Version None)
Quarter: 2005Q2

REPORT INFORMATION
  Report Type: 
  Country: None (occurrence: None)
  Receive Date: 20050413
  Receipt Date: 20050405
  Transmission Date: 20051028
  Serious: Yes (Hospitalization, Other)
  Sender: FDA-Public Use
  Company Number: HQWYE786007APR05

PATIENT
  Age: 48 Year
  Sex: Female

DRUGS (2)
  1. EFFEXOR [Suspect]
     Indication: DEPRESSION
     Dosage: 12.5 MG 1X PER 1 DAY, ORAL
     Route: 048
     Dates: start: 20040201, end: 20050301
  2. NEURONTIN [Concomitant]

REACTIONS (1)
  - HEPATITIS CHOLESTATIC [None]
